FAERS Safety Report 19240493 (Version 1)
Quarter: 2021Q2

REPORT INFORMATION
  Report Type: Report from Study
  Country: US (occurrence: US)
  Receive Date: 20210511
  Receipt Date: 20210511
  Transmission Date: 20210717
  Serious: Yes (Hospitalization)
  Sender: FDA-Public Use
  Company Number: US-JNJFOC-20210400001

PATIENT
  Age: 42 Year
  Sex: Female
  Weight: 45.9 kg

DRUGS (6)
  1. SELEXIPAG [Suspect]
     Active Substance: SELEXIPAG
     Route: 048
  2. TYVASO [Concomitant]
     Active Substance: TREPROSTINIL
  3. SELEXIPAG [Suspect]
     Active Substance: SELEXIPAG
     Indication: PULMONARY ARTERIAL HYPERTENSION
     Route: 048
  4. TADALAFIL. [Concomitant]
     Active Substance: TADALAFIL
  5. MACITENTAN [Suspect]
     Active Substance: MACITENTAN
     Indication: PULMONARY ARTERIAL HYPERTENSION
     Route: 048
  6. XARELTO [Concomitant]
     Active Substance: RIVAROXABAN

REACTIONS (5)
  - Pulmonary arterial hypertension [Unknown]
  - Fluid retention [Unknown]
  - Brain natriuretic peptide increased [Unknown]
  - Herpes zoster [Unknown]
  - Incorrect dose administered [Unknown]

NARRATIVE: CASE EVENT DATE: 20210318
